FAERS Safety Report 5793035-8 (Version None)
Quarter: 2008Q2

REPORT INFORMATION
  Report Type: 
  Country: None (occurrence: None)
  Receive Date: 20080627
  Receipt Date: 20080624
  Transmission Date: 20081010
  Serious: Yes (Hospitalization)
  Sender: FDA-Public Use
  Company Number: IT-AVENTIS-200811494EU

PATIENT
  Age: 64 Year
  Sex: Male

DRUGS (4)
  1. CLEXANE [Suspect]
     Route: 058
     Dates: start: 20080225, end: 20080319
  2. VANCOCINA A.P. [Suspect]
     Route: 042
     Dates: start: 20080225, end: 20080317
  3. BACTRIM [Suspect]
     Route: 042
     Dates: start: 20080225, end: 20080317
  4. NIMOTOP [Concomitant]
     Route: 048
     Dates: start: 20080225, end: 20080319

REACTIONS (2)
  - BONE MARROW FAILURE [None]
  - PANCYTOPENIA [None]
